FAERS Safety Report 6702547-1 (Version None)
Quarter: 2010Q2

REPORT INFORMATION
  Report Type: 
  Country: None (occurrence: None)
  Receive Date: 20100429
  Receipt Date: 20100415
  Transmission Date: 20101027
  Serious: Yes (Hospitalization, Other)
  Sender: FDA-Public Use
  Company Number: US-ELI_LILLY_AND_COMPANY-US201004005500

PATIENT
  Sex: Female

DRUGS (11)
  1. FORTEO [Suspect]
     Indication: OSTEOPOROSIS
     Dosage: 20 UG, DAILY (1/D)
     Dates: start: 20090601
  2. DRONEDARONE HCL [Concomitant]
  3. QUINAPRIL [Concomitant]
  4. METOPROLOL [Concomitant]
  5. SYNTHROID [Concomitant]
  6. LIPITOR [Concomitant]
  7. COUMADIN [Concomitant]
  8. ASPIRIN [Concomitant]
  9. VITAMIN D [Concomitant]
  10. CALCIUM [Concomitant]
  11. MAGNESIUM [Concomitant]

REACTIONS (7)
  - ARRHYTHMIA [None]
  - BLOOD COUNT ABNORMAL [None]
  - DYSGEUSIA [None]
  - HAEMATOCRIT DECREASED [None]
  - HOSPITALISATION [None]
  - NAUSEA [None]
  - VIRAL INFECTION [None]
